FAERS Safety Report 9146858 (Version 1)
Quarter: 2013Q1

REPORT INFORMATION
  Report Type: Spontaneous
  Country: US (occurrence: None)
  Receive Date: 20130228
  Receipt Date: 20130228
  Transmission Date: 20140127
  Serious: Yes (Disabling)
  Sender: FDA-Public Use
  Company Number: None

PATIENT
  Age: 71 Year
  Sex: Female
  Weight: 61.4 kg

DRUGS (1)
  1. COLGATE PERIOGARD [Suspect]
     Dosage: 1/3 CAP 1 MOUTH
     Route: 048
     Dates: start: 20121003

REACTIONS (8)
  - Stomatitis [None]
  - Oral mucosal exfoliation [None]
  - Lip exfoliation [None]
  - Tongue exfoliation [None]
  - Skin exfoliation [None]
  - Oral discomfort [None]
  - Ageusia [None]
  - Product label issue [None]
